FAERS Safety Report 25510120 (Version 2)
Quarter: 2025Q3

REPORT INFORMATION
  Report Type: Spontaneous
  Country: JP (occurrence: JP)
  Receive Date: 20250703
  Receipt Date: 20250723
  Transmission Date: 20251020
  Serious: No
  Sender: BRISTOL-MYERS SQUIBB COMPANY
  Company Number: JP-TAIHO-2025-006838

PATIENT
  Age: 9 Decade
  Sex: Female

DRUGS (11)
  1. ABRAXANE [Suspect]
     Active Substance: PACLITAXEL
     Indication: Pancreatic carcinoma
     Dosage: 130 MG/DAY, 1ST CYCLE, DAY 1 OF EACH 28-DAY CYCLE
     Route: 041
     Dates: start: 20250502
  2. ABRAXANE [Suspect]
     Active Substance: PACLITAXEL
     Dosage: 130 MG/DAY, 1ST CYCLE, DAY 8 OF EACH 28-DAY CYCLE
     Route: 041
     Dates: start: 20250509
  3. ABRAXANE [Suspect]
     Active Substance: PACLITAXEL
     Dosage: 130 MG/DAY, 1ST CYCLE, DAY 15 OF EACH 28-DAY CYCLE
     Route: 041
     Dates: start: 20250516
  4. ABRAXANE [Suspect]
     Active Substance: PACLITAXEL
     Dosage: 130 MG/DAY, 2ND CYCLE, DAY 1 OF EACH 28-DAY CYCLE
     Route: 041
     Dates: start: 20250530
  5. ABRAXANE [Suspect]
     Active Substance: PACLITAXEL
     Dosage: 130 MG/DAY, 2ND CYCLE, DAY 8 OF EACH 28-DAY CYCLE
     Route: 041
     Dates: start: 20250606
  6. ABRAXANE [Suspect]
     Active Substance: PACLITAXEL
     Dosage: 130 MG/DAY, 2ND CYCLE, DAY 15 OF EACH 28-DAY CYCLE
     Route: 041
     Dates: start: 20250613, end: 20250613
  7. GEMCITABINE HYDROCHLORIDE [Concomitant]
     Active Substance: GEMCITABINE HYDROCHLORIDE
     Indication: Pancreatic carcinoma
     Dates: start: 20250502
  8. ELDECALCITOL [Concomitant]
     Active Substance: ELDECALCITOL
     Indication: Product used for unknown indication
  9. MAGNESIUM OXIDE [Concomitant]
     Active Substance: MAGNESIUM OXIDE
     Indication: Product used for unknown indication
  10. HACHIAZULE [SODIUM BICARBONATE;SODIUM GUALENATE] [Concomitant]
     Indication: Product used for unknown indication
     Route: 049
  11. ASPARA CA [Concomitant]
     Indication: Product used for unknown indication

REACTIONS (1)
  - Vision blurred [Unknown]

NARRATIVE: CASE EVENT DATE: 20250620
